FAERS Safety Report 8544345-2 (Version None)
Quarter: 2012Q3

REPORT INFORMATION
  Report Type: 
  Country: None (occurrence: None)
  Receive Date: 20120717
  Receipt Date: 20120702
  Transmission Date: 20120928
  Serious: Yes (Other)
  Sender: FDA-Public Use
  Company Number: 2012P1040062

PATIENT
  Age: 90 Year
  Sex: Female
  Weight: 63.5036 kg

DRUGS (4)
  1. THYROID TAB [Concomitant]
  2. WARFARIN SODIUM [Suspect]
     Indication: ATRIAL FIBRILLATION
  3. LASIX [Concomitant]
  4. DIGOXIN [Concomitant]

REACTIONS (5)
  - HIP FRACTURE [None]
  - FALL [None]
  - PELVIC FRACTURE [None]
  - TOOTH DISORDER [None]
  - REFUSAL OF TREATMENT BY PATIENT [None]
